FAERS Safety Report 24533752 (Version 1)
Quarter: 2024Q4

REPORT INFORMATION
  Report Type: Spontaneous
  Country: US (occurrence: US)
  Receive Date: 20241022
  Receipt Date: 20241022
  Transmission Date: 20250114
  Serious: No
  Sender: ALIMERA
  Company Number: US-ALIMERA SCIENCES INC.-US-A16013-23-000274

PATIENT

DRUGS (3)
  1. ILUVIEN [Suspect]
     Active Substance: FLUOCINOLONE ACETONIDE
     Indication: Type 2 diabetes mellitus
     Dosage: 0.25 MILLIGRAM, QD, UNKNOWN EYE
     Route: 031
     Dates: start: 20231010
  2. ILUVIEN [Suspect]
     Active Substance: FLUOCINOLONE ACETONIDE
     Indication: Diabetic retinopathy
  3. ILUVIEN [Suspect]
     Active Substance: FLUOCINOLONE ACETONIDE
     Indication: Macular oedema

REACTIONS (3)
  - Patient uncooperative [Unknown]
  - Circumstance or information capable of leading to medication error [Unknown]
  - Needle issue [Unknown]
